FAERS Safety Report 12278725 (Version 2)
Quarter: 2016Q2

REPORT INFORMATION
  Report Type: Spontaneous
  Country: SE (occurrence: SE)
  Receive Date: 20160418
  Receipt Date: 20160616
  Transmission Date: 20160815
  Serious: Yes (Other)
  Sender: FDA-Public Use
  Company Number: SE-ELI_LILLY_AND_COMPANY-SE201602005100

PATIENT
  Age: 40 Year
  Sex: Female

DRUGS (2)
  1. FORSTEO [Suspect]
     Active Substance: TERIPARATIDE
     Indication: OSTEOPOROSIS
     Dosage: 20 UG, QD
     Route: 065
     Dates: start: 201502
  2. FORSTEO [Suspect]
     Active Substance: TERIPARATIDE
     Indication: SPINAL FRACTURE

REACTIONS (1)
  - Blood alkaline phosphatase increased [Recovered/Resolved]
